FAERS Safety Report 14818250 (Version 1)
Quarter: 2018Q2

REPORT INFORMATION
  Report Type: Spontaneous
  Country: DE (occurrence: DE)
  Receive Date: 20180427
  Receipt Date: 20180427
  Transmission Date: 20180711
  Serious: Yes (Other)
  Sender: FDA-Public Use
  Company Number: DE-ACS-001073

PATIENT
  Age: 75 Year
  Sex: Female

DRUGS (1)
  1. AMPICILLIN SULBACTAM [Suspect]
     Active Substance: AMPICILLIN SODIUM\SULBACTAM SODIUM
     Indication: ARTHRITIS INFECTIVE
     Route: 042

REACTIONS (1)
  - Pyrexia [Recovered/Resolved]
